FAERS Safety Report 4627293-X (Version None)
Quarter: 2005Q1

REPORT INFORMATION
  Report Type: 
  Country: None (occurrence: None)
  Receive Date: 20050331
  Receipt Date: 20050318
  Transmission Date: 20050727
  Serious: Yes (Hospitalization)
  Sender: FDA-Public Use
  Company Number: 2005046576

PATIENT
  Age: 73 Year
  Sex: Male

DRUGS (5)
  1. VALDECOXIB [Suspect]
     Indication: RIB FRACTURE
     Dosage: 40 MG (1 D)
     Dates: start: 20050221, end: 20050301
  2. ALL OTHER THERAPEUTIC PRODUCTS (ALL OTHER THERAPEUTIC PRODUCTS) [Concomitant]
  3. CITRIC ACID (CITRIC ACID) [Concomitant]
  4. ASPIRIN [Concomitant]
  5. BISMUTH SUBSALICYLATE (BISMUTH SUBSALICYLATE) [Concomitant]

REACTIONS (5)
  - ASTHENIA [None]
  - AZOTAEMIA [None]
  - HAEMOGLOBIN DECREASED [None]
  - PALLOR [None]
  - RENAL FAILURE ACUTE [None]
